FAERS Safety Report 10985463 (Version 1)
Quarter: 2015Q2

REPORT INFORMATION
  Report Type: Spontaneous
  Country: US (occurrence: US)
  Receive Date: 20150404
  Receipt Date: 20150404
  Transmission Date: 20150821
  Serious: No
  Sender: FDA-Public Use
  Company Number: US-SA-2014SA107633

PATIENT
  Age: 63 Year
  Sex: Female

DRUGS (2)
  1. ALLEGRA-D [Suspect]
     Active Substance: FEXOFENADINE\PSEUDOEPHEDRINE
     Indication: RHINORRHOEA
     Route: 048
     Dates: start: 20141026
  2. ALLEGRA-D [Suspect]
     Active Substance: FEXOFENADINE\PSEUDOEPHEDRINE
     Indication: OROPHARYNGEAL PAIN
     Route: 048
     Dates: start: 20141026

REACTIONS (4)
  - Rhinorrhoea [Unknown]
  - Headache [Unknown]
  - Sinus congestion [Unknown]
  - Condition aggravated [Unknown]

NARRATIVE: CASE EVENT DATE: 20141027
